FAERS Safety Report 4455624-2 (Version None)
Quarter: 2004Q3

REPORT INFORMATION
  Report Type: 
  Country: None (occurrence: None)
  Receive Date: 20040920
  Receipt Date: 20040920
  Transmission Date: 20050211
  Serious: Yes (Death)
  Sender: FDA-Public Use
  Company Number: None

PATIENT
  Sex: Male
  Weight: 95.2554 kg

DRUGS (2)
  1. KENALOG-40 [Suspect]
     Indication: RADICULOPATHY
     Dosage: 10 MG
     Dates: start: 20040918
  2. LIDOCAINE 1% [Suspect]
     Indication: BACK PAIN
     Dosage: 5 CC
     Dates: start: 20040918

REACTIONS (1)
  - DEATH [None]
